FAERS Safety Report 6310210-4 (Version None)
Quarter: 2009Q3

REPORT INFORMATION
  Report Type: 
  Country: None (occurrence: None)
  Receive Date: 20090814
  Receipt Date: 20090803
  Transmission Date: 20100115
  Serious: Yes (Death, Other)
  Sender: FDA-Public Use
  Company Number: TW-ELI_LILLY_AND_COMPANY-TW200908003068

PATIENT
  Age: 44 Year
  Sex: Female

DRUGS (5)
  1. GEMZAR [Suspect]
     Indication: NON-HODGKIN'S LYMPHOMA
     Dosage: 800 MG/M2, OTHER (DAYS ONE AND EIGHT OF A FOUR WEEK CYCLE)
     Route: 042
  2. ETOPOSID [Concomitant]
     Dosage: 40 MG/M2, DAILY (1/D) (FOR ONE HOUR ON DAYS 1-3
     Route: 042
  3. CISPLATIN [Concomitant]
     Dosage: 40 MG/M2, OTHER (24 HRS ON DAY ONE)
     Route: 042
  4. METHYLPREDNISOLONE [Concomitant]
     Dosage: 135 MG/M2, UNKNOWN ON DAYS ONE-FOUR
     Route: 065
  5. RITUXIMAB [Concomitant]
     Dosage: UNK, UNKNOWN
     Route: 065

REACTIONS (3)
  - GENERAL PHYSICAL HEALTH DETERIORATION [None]
  - MALIGNANT NEOPLASM PROGRESSION [None]
  - NERVOUS SYSTEM DISORDER [None]
